FAERS Safety Report 5352099-6 (Version None)
Quarter: 2007Q2

REPORT INFORMATION
  Report Type: 
  Country: None (occurrence: None)
  Receive Date: 20070611
  Receipt Date: 20070605
  Transmission Date: 20071010
  Serious: Yes (Other)
  Sender: FDA-Public Use
  Company Number: FR-BRISTOL-MYERS SQUIBB COMPANY-13771431

PATIENT
  Age: 43 Year
  Sex: Male

DRUGS (3)
  1. ABILIFY [Suspect]
     Indication: SCHIZOPHRENIA
     Dosage: INCREASED TO 15/MG/D
     Route: 048
     Dates: start: 20050624, end: 20050716
  2. RISPERDAL [Suspect]
     Dates: start: 20040208, end: 20050716
  3. TERCIAN [Suspect]
     Dates: start: 20050623, end: 20050716

REACTIONS (6)
  - ALANINE AMINOTRANSFERASE INCREASED [None]
  - ATELECTASIS [None]
  - EYELID FUNCTION DISORDER [None]
  - KERATITIS [None]
  - LEUKOCYTOSIS [None]
  - NEUROLEPTIC MALIGNANT SYNDROME [None]
